FAERS Safety Report 6266430-0 (Version None)
Quarter: 2009Q3

REPORT INFORMATION
  Report Type: 
  Country: None (occurrence: None)
  Receive Date: 20090713
  Receipt Date: 20090706
  Transmission Date: 20100115
  Serious: Yes (Life-Threatening, Hospitalization, Other)
  Sender: FDA-Public Use
  Company Number: DE-ASTRAZENECA-2009SE04046

PATIENT
  Age: 78 Year
  Sex: Male
  Weight: 75 kg

DRUGS (16)
  1. CARBOSTESIN [Suspect]
     Indication: INTERVERTEBRAL DISC PROTRUSION
     Route: 008
     Dates: start: 20090416
  2. CARBOSTESIN [Suspect]
     Route: 008
     Dates: start: 20090430
  3. CARBOSTESIN [Suspect]
     Route: 008
     Dates: start: 20090507
  4. VOLTAREN [Suspect]
     Indication: INTERVERTEBRAL DISC PROTRUSION
     Route: 054
     Dates: start: 20090302, end: 20090314
  5. DICLOFENAC SODIUM [Suspect]
     Indication: INTERVERTEBRAL DISC PROTRUSION
     Route: 048
     Dates: start: 20090302, end: 20090314
  6. ISOVIST [Suspect]
     Indication: INTERVERTEBRAL DISC PROTRUSION
     Route: 008
     Dates: start: 20090416
  7. ISOVIST [Suspect]
     Route: 008
     Dates: start: 20090430
  8. ISOVIST [Suspect]
     Route: 008
     Dates: start: 20090507
  9. SIMVASTATIN [Concomitant]
     Indication: HYPERCHOLESTEROLAEMIA
     Route: 048
     Dates: start: 20070101, end: 20090512
  10. LIPOTALON [Concomitant]
     Indication: INTERVERTEBRAL DISC PROTRUSION
     Route: 008
     Dates: start: 20090416
  11. LIPOTALON [Concomitant]
     Route: 008
     Dates: start: 20090430
  12. LIPOTALON [Concomitant]
     Route: 008
     Dates: start: 20090507
  13. HYLASE DESSAU [Concomitant]
     Indication: INTERVERTEBRAL DISC PROTRUSION
     Dosage: 1X 1 AMPOULE AT 300 IU ON 16 APR, 30 APR AND 07 MAY 2009 EPIDURAL
     Route: 008
     Dates: start: 20090416, end: 20090507
  14. HYLASE DESSAU [Concomitant]
     Dosage: 1X 1 AMPOULE AT 300 IU ON 16 APR, 30 APR AND 07 MAY 2009 EPIDURAL
     Route: 008
     Dates: start: 20090430
  15. HYLASE DESSAU [Concomitant]
     Route: 008
     Dates: start: 20090507
  16. BEPANTHEN [Concomitant]
     Indication: NASAL DISCOMFORT
     Dosage: 3-4X WEEKLY NASAL
     Route: 045
     Dates: start: 19790101, end: 20090513

REACTIONS (1)
  - AUTOIMMUNE THROMBOCYTOPENIA [None]
